FAERS Safety Report 9236289 (Version 1)
Quarter: 2013Q2

REPORT INFORMATION
  Report Type: Spontaneous
  Country: CA (occurrence: CA)
  Receive Date: 20130417
  Receipt Date: 20130417
  Transmission Date: 20140414
  Serious: Yes (Other)
  Sender: FDA-Public Use
  Company Number: CA-AMGEN-CANSP2013026094

PATIENT
  Age: 47 Year
  Sex: Female

DRUGS (1)
  1. XGEVA [Suspect]
     Indication: NEOPLASM MALIGNANT
     Dosage: 120 MG/1.7ML, UNK
     Dates: start: 20111007, end: 20130328

REACTIONS (1)
  - Neoplasm malignant [Recovered/Resolved]
